FAERS Safety Report 14255529 (Version 2)
Quarter: 2017Q4

REPORT INFORMATION
  Report Type: Report from Study
  Country: US (occurrence: US)
  Receive Date: 20171206
  Receipt Date: 20171208
  Transmission Date: 20180321
  Serious: Yes (Other)
  Sender: FDA-Public Use
  Company Number: US-AMGEN-USASP2017178060

PATIENT
  Age: 79 Year
  Sex: Male

DRUGS (1)
  1. NPLATE [Suspect]
     Active Substance: ROMIPLOSTIM
     Indication: PRODUCT USED FOR UNKNOWN INDICATION
     Dosage: 440 MUG, UNK
     Route: 065
     Dates: start: 201705

REACTIONS (6)
  - Ear haemorrhage [Unknown]
  - Device dislocation [Unknown]
  - Otorrhoea [Unknown]
  - Platelet count decreased [Unknown]
  - Skin mass [Recovering/Resolving]
  - Blister infected [Recovering/Resolving]

NARRATIVE: CASE EVENT DATE: 2017
